FAERS Safety Report 5511943-X (Version None)
Quarter: 2007Q4

REPORT INFORMATION
  Report Type: 
  Country: None (occurrence: None)
  Receive Date: 20071109
  Receipt Date: 20071029
  Transmission Date: 20080405
  Serious: Yes (Hospitalization, Other)
  Sender: FDA-Public Use
  Company Number: JP-PFIZER INC-2007092301

PATIENT
  Sex: Male

DRUGS (9)
  1. VFEND [Interacting]
     Indication: ASPERGILLOSIS
     Dosage: DAILY DOSE:400MG
     Route: 048
  2. RHYTHMY [Interacting]
     Route: 048
  3. PREDNISOLONE [Suspect]
     Route: 048
  4. MEDICON [Concomitant]
     Route: 048
  5. URSO 250 [Concomitant]
     Route: 048
  6. ZANTAC [Concomitant]
     Route: 048
  7. BEZATOL [Concomitant]
     Route: 048
  8. BAKTAR [Concomitant]
     Route: 048
  9. CODEINE SUL TAB [Concomitant]
     Route: 048

REACTIONS (4)
  - DRUG INTERACTION [None]
  - HALLUCINATION, AUDITORY [None]
  - HALLUCINATION, VISUAL [None]
  - INSOMNIA [None]
